FAERS Safety Report 20899759 (Version 1)
Quarter: 2022Q2

REPORT INFORMATION
  Report Type: Spontaneous
  Country: US (occurrence: US)
  Receive Date: 20220601
  Receipt Date: 20220601
  Transmission Date: 20220721
  Serious: No
  Sender: FDA-Public Use
  Company Number: US-AUROBINDO-AUR-APL-2021-042642

PATIENT
  Age: 75 Year
  Sex: Female

DRUGS (1)
  1. ONDANSETRON [Suspect]
     Active Substance: ONDANSETRON
     Indication: Nausea
     Dosage: 8 MILLIGRAM, ONCE A DAY
     Route: 048
     Dates: start: 20210929, end: 20211005

REACTIONS (2)
  - Product taste abnormal [Unknown]
  - Drug ineffective [Unknown]
